FAERS Safety Report 20939528 (Version 3)
Quarter: 2022Q2

REPORT INFORMATION
  Report Type: Report from Study
  Country: IT (occurrence: None)
  Receive Date: 20220609
  Receipt Date: 20220623
  Transmission Date: 20220721
  Serious: Yes (Hospitalization)
  Sender: FDA-Public Use
  Company Number: IT-ROCHE-3019003

PATIENT
  Age: 62 Year
  Sex: Female
  Weight: 78 kg

DRUGS (15)
  1. PRALSETINIB [Suspect]
     Active Substance: PRALSETINIB
     Indication: Non-small cell lung cancer metastatic
     Dosage: MOST RECENT DOSE WAS ON 23/JAN/2022
     Route: 048
     Dates: start: 20220105
  2. CISPLATIN [Suspect]
     Active Substance: CISPLATIN
     Indication: Non-small cell lung cancer metastatic
     Dosage: 75 MG/MQ, MOST RECENT DOSE WAS ON 22/09/2021?KIT NO. 1000444, 1000446, 1000445.
     Route: 042
     Dates: start: 20210719
  3. PEMBROLIZUMAB [Suspect]
     Active Substance: PEMBROLIZUMAB
     Indication: Non-small cell lung cancer metastatic
     Dosage: MOST RECENT DOSE RECEIVED ON 03/NOV/2021
     Route: 042
     Dates: start: 20210719
  4. PEMETREXED [Suspect]
     Active Substance: PEMETREXED
     Indication: Non-small cell lung cancer metastatic
     Dosage: 500 MG/MQ?LATEST DOSE WAS RECEIVED ON 03/NOV/2021
     Route: 042
     Dates: start: 20210719
  5. ARIXTRA [Concomitant]
     Active Substance: FONDAPARINUX SODIUM
     Dosage: 7.5 MG/DIE
     Dates: start: 20210824, end: 20220202
  6. PANTOPRAZOLE SODIUM [Concomitant]
     Active Substance: PANTOPRAZOLE SODIUM
     Dosage: 40 UG/DIE
     Dates: start: 20220201
  7. PREGABALIN [Concomitant]
     Active Substance: PREGABALIN
     Dosage: 25 UG/DIE
     Dates: start: 20210721
  8. MOVICOL [Concomitant]
     Active Substance: POLYETHYLENE GLYCOL 3350\POTASSIUM CHLORIDE\SODIUM BICARBONATE\SODIUM CHLORIDE
     Dosage: 2 SACHET/ DAY
     Dates: start: 20211125
  9. CEFTRIAXONE [Concomitant]
     Active Substance: CEFTRIAXONE
     Dosage: 1 GR/ DIE
     Dates: start: 20220201, end: 20220205
  10. MAGALDRATO [Concomitant]
     Dosage: 2 SACHET/ DIE
     Dates: start: 20220201
  11. CITALOPRAM [Concomitant]
     Active Substance: CITALOPRAM HYDROBROMIDE
     Dosage: 8 GTT/DIE
     Dates: start: 20220202
  12. FILGRASTIM [Concomitant]
     Active Substance: FILGRASTIM
     Dosage: 2 VIAL
     Route: 058
  13. ERYTHROPOIETIN [Concomitant]
     Active Substance: ERYTHROPOIETIN
     Dosage: 1 VIAL
     Route: 058
  14. PIPERACILLIN SODIUM\TAZOBACTAM SODIUM [Concomitant]
     Active Substance: PIPERACILLIN SODIUM\TAZOBACTAM SODIUM
     Dates: start: 20220202, end: 20220207
  15. METHYLPREDNISOLONE [Concomitant]
     Active Substance: METHYLPREDNISOLONE

REACTIONS (1)
  - Pancytopenia [Recovered/Resolved]

NARRATIVE: CASE EVENT DATE: 20220201
